FAERS Safety Report 15256013 (Version 2)
Quarter: 2018Q3

REPORT INFORMATION
  Report Type: Report from Study
  Country: HU (occurrence: HU)
  Receive Date: 20180808
  Receipt Date: 20180830
  Transmission Date: 20181010
  Serious: Yes (Hospitalization)
  Sender: FDA-Public Use
  Company Number: PHHO2016HU006486

PATIENT
  Age: 63 Year
  Sex: Male
  Weight: 102 kg

DRUGS (9)
  1. AMN107 [Suspect]
     Active Substance: NILOTINIB
     Indication: CHRONIC MYELOID LEUKAEMIA
     Dosage: 300 MG, BID
     Route: 048
     Dates: start: 20131211, end: 20151228
  2. ZALDIAR [Concomitant]
     Active Substance: ACETAMINOPHEN\TRAMADOL HYDROCHLORIDE
     Indication: ARTHRALGIA
     Dosage: 37.5/325 MG BID
     Route: 048
     Dates: start: 20160215, end: 20160229
  3. PRETANIX KOMB [Concomitant]
     Indication: HYPERTENSION
     Dosage: 4/1/25 MG QD
     Route: 048
     Dates: start: 20160816
  4. ASA [Concomitant]
     Active Substance: ASPIRIN
     Indication: ANGINA PECTORIS
     Dosage: 100 MG, QD
     Route: 048
     Dates: start: 20180314
  5. AFLAMIN [Concomitant]
     Indication: ARTHRALGIA
     Dosage: 100 MG, BID
     Route: 048
     Dates: start: 20160215, end: 20160229
  6. ROSUVASTATIN. [Concomitant]
     Active Substance: ROSUVASTATIN
     Indication: ANGINA PECTORIS
     Dosage: 10 MG, QD
     Route: 048
     Dates: start: 20180314
  7. MODUXIN MR [Concomitant]
     Active Substance: TRIMETAZIDINE DIHYDROCHLORIDE
     Indication: ANGINA PECTORIS
     Dosage: 35 MG, BID
     Route: 048
     Dates: start: 20180412
  8. BISOPROLOL [Concomitant]
     Active Substance: BISOPROLOL
     Indication: ANGINA PECTORIS
     Dosage: 2.5 MG, BID
     Route: 048
     Dates: start: 20180314
  9. SIRDALUD [Concomitant]
     Active Substance: TIZANIDINE
     Indication: ARTHRALGIA
     Dosage: 6 MG, BID
     Route: 048
     Dates: start: 20160215, end: 20160229

REACTIONS (2)
  - Coronary artery stenosis [Recovered/Resolved]
  - Osteoarthritis [Not Recovered/Not Resolved]

NARRATIVE: CASE EVENT DATE: 20160211
